FAERS Safety Report 10025329 (Version 1)
Quarter: 2014Q1

REPORT INFORMATION
  Report Type: Spontaneous
  Country: US (occurrence: US)
  Receive Date: 20140320
  Receipt Date: 20140320
  Transmission Date: 20141002
  Serious: Yes (Death)
  Sender: FDA-Public Use
  Company Number: US-PFIZER INC-2014078752

PATIENT
  Age: 58 Year
  Sex: Male

DRUGS (1)
  1. CAMPTOSAR [Suspect]
     Indication: BRAIN NEOPLASM MALIGNANT
     Dosage: 125 MG, UNK
     Dates: start: 20131105

REACTIONS (2)
  - Death [Fatal]
  - Off label use [Unknown]
